FAERS Safety Report 9251197 (Version 1)
Quarter: 2013Q2

REPORT INFORMATION
  Report Type: Spontaneous
  Country: US (occurrence: US)
  Receive Date: 20130424
  Receipt Date: 20130424
  Transmission Date: 20140414
  Serious: Yes (Other)
  Sender: FDA-Public Use
  Company Number: US-PFIZER INC-2013126580

PATIENT
  Sex: Male

DRUGS (1)
  1. LYRICA [Suspect]
     Indication: NEUROPATHY PERIPHERAL
     Dosage: UNK

REACTIONS (5)
  - Wheezing [Unknown]
  - Dyspnoea [Unknown]
  - Diplopia [Unknown]
  - Somnolence [Unknown]
  - Drug ineffective [Unknown]
